FAERS Safety Report 7473187-4 (Version None)
Quarter: 2011Q2

REPORT INFORMATION
  Report Type: 
  Country: None (occurrence: None)
  Receive Date: 20110511
  Receipt Date: 20110509
  Transmission Date: 20111010
  Serious: Yes (Death)
  Sender: FDA-Public Use
  Company Number: A0905562A

PATIENT
  Age: 77 Year
  Sex: Female

DRUGS (1)
  1. AVANDARYL [Suspect]
     Route: 048
     Dates: start: 20060401, end: 20071201

REACTIONS (1)
  - MYOCARDIAL INFARCTION [None]
